FAERS Safety Report 11791699 (Version 1)
Quarter: 2015Q4

REPORT INFORMATION
  Report Type: Spontaneous
  Country: US (occurrence: US)
  Receive Date: 20151201
  Receipt Date: 20151201
  Transmission Date: 20160305
  Serious: No
  Sender: FDA-Public Use
  Company Number: US-ASTRAZENECA-2015SF18158

PATIENT
  Age: 77 Year
  Sex: Male

DRUGS (1)
  1. TUDORZA PRESSAIR [Suspect]
     Active Substance: ACLIDINIUM BROMIDE
     Indication: OBSTRUCTIVE AIRWAYS DISORDER
     Route: 055

REACTIONS (8)
  - Expired product administered [Unknown]
  - Off label use [Not Recovered/Not Resolved]
  - Pulmonary function test decreased [Not Recovered/Not Resolved]
  - Intentional product misuse [Unknown]
  - Dyspnoea [Unknown]
  - Feeling abnormal [Unknown]
  - Adverse event [Unknown]
  - Drug dependence [Unknown]
